FAERS Safety Report 10433674 (Version 2)
Quarter: 2014Q3

REPORT INFORMATION
  Report Type: Spontaneous
  Country: PL (occurrence: PL)
  Receive Date: 20140905
  Receipt Date: 20140905
  Transmission Date: 20150326
  Serious: Yes (Hospitalization)
  Sender: FDA-Public Use
  Company Number: PHHY2014PL106925

PATIENT
  Sex: Female

DRUGS (5)
  1. CARBAMAZEPINE. [Suspect]
     Active Substance: CARBAMAZEPINE
     Indication: TRIGEMINAL NEURALGIA
     Dosage: 200 MG, TID
  2. VALPROIC ACID. [Suspect]
     Active Substance: VALPROIC ACID
     Dosage: 1200 MG, DAILY
  3. VALPROIC ACID. [Suspect]
     Active Substance: VALPROIC ACID
     Indication: CONVULSION
     Dosage: 900 MG, DAILY
  4. CARBAMAZEPINE. [Suspect]
     Active Substance: CARBAMAZEPINE
     Dosage: 900 MG, DAILY
  5. GABAPENTIN. [Concomitant]
     Active Substance: GABAPENTIN
     Dosage: 1200 MG, DAILY

REACTIONS (13)
  - Weight increased [Unknown]
  - Eye swelling [Unknown]
  - Fatigue [Unknown]
  - Body temperature decreased [Unknown]
  - Blood thyroid stimulating hormone increased [Unknown]
  - Constipation [Unknown]
  - Hypothyroidism [Unknown]
  - Muscle spasms [Unknown]
  - Menstruation irregular [Unknown]
  - Bradycardia [Unknown]
  - Dry skin [Unknown]
  - Hyporeflexia [Unknown]
  - Temperature intolerance [Unknown]
